FAERS Safety Report 8851431 (Version 1)
Quarter: 2012Q4

REPORT INFORMATION
  Report Type: 
  Country: US (occurrence: US)
  Receive Date: 20121021
  Receipt Date: 20121021
  Transmission Date: 20130627
  Serious: Yes (Life-Threatening, Other)
  Sender: FDA-Public Use
  Company Number: US-TEVA-365156USA

PATIENT
  Sex: Female

DRUGS (1)
  1. COPAXONE [Suspect]
     Indication: MULTIPLE SCLEROSIS
     Dates: start: 20120427, end: 20120716

REACTIONS (4)
  - Respiratory arrest [Unknown]
  - Hypersensitivity [Unknown]
  - Loss of consciousness [Unknown]
  - Concussion [Unknown]
